FAERS Safety Report 13842565 (Version 1)
Quarter: 2017Q3

REPORT INFORMATION
  Report Type: Spontaneous
  Country: US (occurrence: US)
  Receive Date: 20170807
  Receipt Date: 20170807
  Transmission Date: 20171127
  Serious: No
  Sender: FDA-Public Use
  Company Number: None

PATIENT
  Sex: Female
  Weight: 74.25 kg

DRUGS (16)
  1. CALCIUM CITRATE WITH VITAMIN D [Concomitant]
     Active Substance: CALCIUM CITRATE\VITAMIN D
  2. VITAMIN C [Concomitant]
     Active Substance: ASCORBIC ACID
  3. VITAMIN E [Concomitant]
     Active Substance: .ALPHA.-TOCOPHEROL
  4. CELEXICOB [Concomitant]
  5. CETIRIZINE [Concomitant]
     Active Substance: CETIRIZINE HYDROCHLORIDE
  6. SALMON OIL [Concomitant]
     Active Substance: FISH OIL
  7. PROBIOTIC [Concomitant]
     Active Substance: PROBIOTICS NOS
  8. SUMATRIPTAN. [Concomitant]
     Active Substance: SUMATRIPTAN
  9. OSTEO BI-FLEX [Concomitant]
     Active Substance: CHONDROITIN SULFATE A\GLUCOSAMINE
  10. ALBUTEROL INHALER [Concomitant]
     Active Substance: ALBUTEROL
  11. ZANTAC [Concomitant]
     Active Substance: RANITIDINE HYDROCHLORIDE
  12. MULTIVITAMIN [Concomitant]
     Active Substance: VITAMINS
  13. VITAMIN B-COMPLEX [Concomitant]
     Active Substance: DEXPANTHENOL\NIACINAMIDE\PYRIDOXINE HYDROCHLORIDE\RIBOFLAVIN 5^-PHOSPHATE SODIUM\THIAMINE HYDROCHLORIDE
  14. FERROUS SULFATE. [Concomitant]
     Active Substance: FERROUS SULFATE
  15. TURMERIC [Concomitant]
     Active Substance: HERBALS\TURMERIC
  16. RECLAST [Suspect]
     Active Substance: ZOLEDRONIC ACID
     Indication: OSTEOPOROSIS
     Dosage: 1 5 MG/100ML INFUSN, ONCE PER YEAR; IV INFUSION AT CLINIC?
     Route: 042
     Dates: start: 20170717, end: 20170717

REACTIONS (16)
  - Arthralgia [None]
  - Flatulence [None]
  - Ageusia [None]
  - Peripheral swelling [None]
  - Nausea [None]
  - Thirst [None]
  - Myalgia [None]
  - Headache [None]
  - Photophobia [None]
  - Fatigue [None]
  - Hypoaesthesia [None]
  - Eye pain [None]
  - Gastrooesophageal reflux disease [None]
  - Decreased appetite [None]
  - Abdominal pain [None]
  - Pain in jaw [None]

NARRATIVE: CASE EVENT DATE: 20170718
